FAERS Safety Report 4912573-0 (Version None)
Quarter: 2006Q1

REPORT INFORMATION
  Report Type: 
  Country: None (occurrence: None)
  Receive Date: 20060215
  Receipt Date: 20060209
  Transmission Date: 20060701
  Serious: Yes (Other)
  Sender: FDA-Public Use
  Company Number: US-GLAXOSMITHKLINE-A0593065A

PATIENT
  Age: 73 Year
  Sex: Male

DRUGS (2)
  1. LAMICTAL [Suspect]
     Indication: EPILEPSY
     Route: 048
     Dates: start: 20060117, end: 20060201
  2. COUMADIN [Concomitant]

REACTIONS (2)
  - FORMICATION [None]
  - HALLUCINATION, VISUAL [None]
